FAERS Safety Report 11876918 (Version 2)
Quarter: 2016Q1

REPORT INFORMATION
  Report Type: Spontaneous
  Country: US (occurrence: US)
  Receive Date: 20151229
  Receipt Date: 20160208
  Transmission Date: 20160526
  Serious: No
  Sender: FDA-Public Use
  Company Number: US-MALLINCKRODT-T201505770

PATIENT
  Age: 89 Year
  Sex: Female
  Weight: 53 kg

DRUGS (7)
  1. PAXIL [Concomitant]
     Active Substance: PAROXETINE HYDROCHLORIDE
  2. KLONOPIN [Concomitant]
     Active Substance: CLONAZEPAM
  3. VITAMIN D [Concomitant]
     Active Substance: CHOLECALCIFEROL
  4. TYLENOL [Concomitant]
     Active Substance: ACETAMINOPHEN
  5. FENTANYL TRANSDERMAL SYSTEM [Suspect]
     Active Substance: FENTANYL
     Indication: PAIN
     Dosage: 75 MCG/HR ONCE EVERY THREE DAYS
     Route: 062
     Dates: start: 2012
  6. PROBIOTIC [Concomitant]
     Active Substance: PROBIOTICS NOS
  7. OXYCODONE [Concomitant]
     Active Substance: OXYCODONE

REACTIONS (3)
  - Incorrect drug administration duration [Recovered/Resolved]
  - Insomnia [Not Recovered/Not Resolved]
  - Pollakiuria [Not Recovered/Not Resolved]

NARRATIVE: CASE EVENT DATE: 20151214
